FAERS Safety Report 6695045-5 (Version None)
Quarter: 2010Q2

REPORT INFORMATION
  Report Type: 
  Country: None (occurrence: None)
  Receive Date: 20100423
  Receipt Date: 20100318
  Transmission Date: 20101027
  Serious: Yes (Other)
  Sender: FDA-Public Use
  Company Number: PHHY2010US24650

PATIENT
  Age: 15 Month
  Sex: Male
  Weight: 9.524 kg

DRUGS (2)
  1. ELIDEL [Suspect]
     Indication: DERMATITIS ATOPIC
     Dosage: TWICE DAILY
     Route: 061
     Dates: start: 20040624, end: 20041224
  2. PROTOPIC [Suspect]
     Indication: DERMATITIS ATOPIC
     Dosage: TWICE DAILY
     Route: 061
     Dates: start: 20041225, end: 20050211

REACTIONS (6)
  - DRUG INEFFECTIVE [None]
  - EAR INFECTION [None]
  - IMMUNODEFICIENCY [None]
  - PYREXIA [None]
  - TINEA CAPITIS [None]
  - UPPER RESPIRATORY TRACT INFECTION [None]
